FAERS Safety Report 21826704 (Version 1)
Quarter: 2023Q1

REPORT INFORMATION
  Report Type: Spontaneous
  Country: FR (occurrence: FR)
  Receive Date: 20230106
  Receipt Date: 20230106
  Transmission Date: 20230418
  Serious: Yes (Other)
  Sender: FDA-Public Use
  Company Number: FR-AFSSAPS-AVLY20220490

PATIENT
  Age: 52 Year
  Sex: Male

DRUGS (3)
  1. ALPRAZOLAM [Suspect]
     Active Substance: ALPRAZOLAM
     Indication: Product used for unknown indication
     Dosage: INTAKE OF 10 TABLETS (5 MG) USUAL DOSAGE OF 1 MG/D
     Route: 048
  2. ALCOHOL [Suspect]
     Active Substance: ALCOHOL
     Indication: Product used for unknown indication
     Dosage: INTAKE OF 2 LITERS OF STRONG BEER
     Route: 048
  3. METHADONE [Suspect]
     Active Substance: METHADONE HYDROCHLORIDE
     Indication: Product used for unknown indication
     Dosage: TAKING MORE THAN THEIR USUAL DOSE OF 120MG/D
     Route: 048

REACTIONS (4)
  - Altered state of consciousness [Recovered/Resolved]
  - Substance abuse [Unknown]
  - Intentional product misuse [Unknown]
  - Skin wound [Recovering/Resolving]

NARRATIVE: CASE EVENT DATE: 20221101
